FAERS Safety Report 9605872 (Version 1)
Quarter: 2013Q4

REPORT INFORMATION
  Report Type: Report from Study
  Country: TH (occurrence: TH)
  Receive Date: 20131008
  Receipt Date: 20131008
  Transmission Date: 20140711
  Serious: Yes (Hospitalization, Other)
  Sender: FDA-Public Use
  Company Number: PHHY2013TH112187

PATIENT
  Age: 47 Year
  Sex: Female
  Weight: 38 kg

DRUGS (4)
  1. GLIVEC [Suspect]
     Indication: CHRONIC MYELOID LEUKAEMIA
     Dosage: 400 MG, DAILY
     Route: 048
     Dates: start: 20071219
  2. GLIVEC [Suspect]
     Dosage: 600 MG, DAILY
     Route: 048
     Dates: start: 20081230, end: 20130410
  3. GLIVEC [Suspect]
     Dosage: 400 MG, DAILY`
     Route: 048
     Dates: start: 20130411
  4. GLIVEC [Suspect]
     Dosage: 100 MG, DAILY
     Route: 048

REACTIONS (3)
  - Intestinal obstruction [Unknown]
  - Rectosigmoid cancer [Unknown]
  - Second primary malignancy [Unknown]
